FAERS Safety Report 9351902 (Version 2)
Quarter: 2013Q3

REPORT INFORMATION
  Report Type: Spontaneous
  Country: FR (occurrence: FR)
  Receive Date: 20130617
  Receipt Date: 20130911
  Transmission Date: 20140515
  Serious: Yes (Death, Other)
  Sender: FDA-Public Use
  Company Number: FR-TEVA-412474ISR

PATIENT
  Age: 80 Year
  Sex: Female

DRUGS (1)
  1. FUROSEMIDE TEVA [Suspect]
     Dosage: .5 TABLET DAILY;

REACTIONS (4)
  - Cardiac arrest [Fatal]
  - Cardiac failure [Unknown]
  - Dyspnoea [Unknown]
  - Somnolence [Unknown]
